FAERS Safety Report 11396779 (Version 2)
Quarter: 2015Q4

REPORT INFORMATION
  Report Type: Spontaneous
  Country: GB (occurrence: GB)
  Receive Date: 20150819
  Receipt Date: 20151104
  Transmission Date: 20160304
  Serious: Yes (Other)
  Sender: FDA-Public Use
  Company Number: GB-BAXTER-2015BAX043870

PATIENT
  Age: 69 Year
  Sex: Female

DRUGS (3)
  1. WATER FOR INJECTION [Suspect]
     Active Substance: WATER
     Indication: CATARACT OPERATION
     Route: 047
     Dates: start: 20150520
  2. CEFUROXIME. [Suspect]
     Active Substance: CEFUROXIME
     Indication: CATARACT OPERATION
     Route: 047
     Dates: start: 20150520
  3. WATER FOR INJECTION [Suspect]
     Active Substance: WATER
     Indication: OFF LABEL USE

REACTIONS (1)
  - Corneal opacity [Unknown]

NARRATIVE: CASE EVENT DATE: 20150520
